FAERS Safety Report 7583085-3 (Version None)
Quarter: 2011Q2

REPORT INFORMATION
  Report Type: 
  Country: None (occurrence: None)
  Receive Date: 20110630
  Receipt Date: 20110621
  Transmission Date: 20111010
  Serious: Yes (Other)
  Sender: FDA-Public Use
  Company Number: US-ELI_LILLY_AND_COMPANY-US201106007533

PATIENT
  Age: 70 Year
  Sex: Male

DRUGS (5)
  1. IMDUR [Concomitant]
     Dosage: 60 MG, UNKNOWN
     Route: 065
  2. EFFIENT [Suspect]
     Indication: STENT PLACEMENT
     Dosage: 10 MG, QD
     Route: 065
     Dates: start: 20110617
  3. ASPIRIN [Concomitant]
     Dosage: 325 MG, QD
     Route: 065
  4. DIOVAN [Concomitant]
     Dosage: 80 MG, UNKNOWN
     Route: 065
  5. LIPITOR [Concomitant]
     Dosage: 40 MG, UNKNOWN
     Route: 065

REACTIONS (4)
  - NAUSEA [None]
  - JAUNDICE [None]
  - DRUG ERUPTION [None]
  - VOMITING [None]
